FAERS Safety Report 21634064 (Version 7)
Quarter: 2023Q2

REPORT INFORMATION
  Report Type: Spontaneous
  Country: IN (occurrence: IN)
  Receive Date: 20221123
  Receipt Date: 20230525
  Transmission Date: 20230721
  Serious: Yes (Hospitalization, Other)
  Sender: FDA-Public Use
  Company Number: IN-PFIZER INC-PV202200109457

PATIENT
  Age: 76 Year
  Sex: Female
  Weight: 70 kg

DRUGS (13)
  1. PALBOCICLIB [Suspect]
     Active Substance: PALBOCICLIB
     Indication: Breast cancer
     Dosage: 125 MG, 1X/DAY
     Route: 048
     Dates: start: 202111
  2. PALBOCICLIB [Suspect]
     Active Substance: PALBOCICLIB
     Dosage: 100 MG, 1X/DAY
     Route: 048
     Dates: start: 2022
  3. PALBOCICLIB [Suspect]
     Active Substance: PALBOCICLIB
     Dosage: 100 MG, 1X/DAY (100MG OD X 21DAYS, THEN STOP FOR 14 DAYS)
     Route: 048
     Dates: end: 20230408
  4. PALBOCICLIB [Suspect]
     Active Substance: PALBOCICLIB
     Dosage: 100 MG, 1X/DAY (100MG OD X 21DAYS, THEN STOP FOR 14 DAYS)
     Route: 048
  5. LETROZOLE [Concomitant]
     Active Substance: LETROZOLE
     Dosage: 2.5 MG, 1X/DAY TO CONTINUE (6 MONTHS)
  6. SHELCAL OS [Concomitant]
     Dosage: 1 DF, DAILY
  7. LUMIA 60K [Concomitant]
     Dosage: ONCE A WEEK X 6WEEKS THEN ONCE A MONTH X 6MONTHS
  8. LUMIA 60K [Concomitant]
     Dosage: ONCE A MONTHS TO CONTINUE
  9. ULTRACET [Concomitant]
     Active Substance: ACETAMINOPHEN\TRAMADOL HYDROCHLORIDE
     Dosage: 1 TAB SOS FOR PAIN(MAX UPTO 3-4 TABS/DAY) (6 MONTHS)
  10. METOPROLOL SUCCINATE [Concomitant]
     Active Substance: METOPROLOL SUCCINATE
     Dosage: UNK
     Dates: start: 202210
  11. TORSEMIDE [Concomitant]
     Active Substance: TORSEMIDE
     Dosage: UNK
     Dates: start: 202210
  12. CANRENOATE POTASSIUM [Concomitant]
     Active Substance: CANRENOATE POTASSIUM
     Dosage: UNK
     Dates: start: 202210
  13. OXRA [Concomitant]
     Dosage: UNK
     Dates: start: 202210

REACTIONS (21)
  - Pulmonary oedema [Unknown]
  - Oxygen saturation decreased [Recovered/Resolved]
  - Glomerular filtration rate decreased [Unknown]
  - Neutrophil count decreased [Unknown]
  - Ejection fraction decreased [Unknown]
  - Left ventricular dysfunction [Unknown]
  - Haemoglobin decreased [Unknown]
  - White blood cell count decreased [Unknown]
  - Blood creatinine increased [Unknown]
  - Blood urea increased [Unknown]
  - Blood uric acid increased [Unknown]
  - Viral infection [Unknown]
  - Lymphoedema [Unknown]
  - Off label use [Unknown]
  - Product use issue [Unknown]
  - Red blood cell count decreased [Unknown]
  - Haematocrit decreased [Unknown]
  - Mean cell volume increased [Unknown]
  - Mean cell haemoglobin increased [Unknown]
  - Red cell distribution width increased [Unknown]
  - Plateletcrit decreased [Unknown]

NARRATIVE: CASE EVENT DATE: 20221001
